FAERS Safety Report 12641910 (Version 1)
Quarter: 2016Q3

REPORT INFORMATION
  Report Type: Spontaneous
  Country: US (occurrence: US)
  Receive Date: 20160810
  Receipt Date: 20160810
  Transmission Date: 20161109
  Serious: No
  Sender: FDA-Public Use
  Company Number: US-TARO-2015TAR01096

PATIENT
  Age: 58 Year
  Sex: Female
  Weight: 50.79 kg

DRUGS (2)
  1. CLOBETASOL PROPIONATE CREAM USP 0.05% [Suspect]
     Active Substance: CLOBETASOL PROPIONATE
     Indication: RASH
     Dosage: UNK UNK, 1X/DAY
     Route: 061
     Dates: start: 20151119, end: 20151120
  2. UNSPECIFIED NUTRITION SUPPLEMENTS [Concomitant]

REACTIONS (3)
  - Insomnia [Recovered/Resolved]
  - Feeling abnormal [Recovered/Resolved]
  - Application site pain [Recovered/Resolved]

NARRATIVE: CASE EVENT DATE: 20151119
